FAERS Safety Report 8248939-3 (Version None)
Quarter: 2012Q2

REPORT INFORMATION
  Report Type: 
  Country: None (occurrence: None)
  Receive Date: 20120402
  Receipt Date: 20120326
  Transmission Date: 20120825
  Serious: Yes (Hospitalization)
  Sender: FDA-Public Use
  Company Number: US-BRISTOL-MYERS SQUIBB COMPANY-16455909

PATIENT
  Age: 24 Year
  Sex: Male
  Weight: 66 kg

DRUGS (1)
  1. IPILIMUMAB [Suspect]
     Indication: MALIGNANT MELANOMA
     Dosage: LAST ADMIN DT 13FEB12 NO OF COURSES 4; REMOVED FROM THE PROTOCOL TREATMENT 13MAR12
     Route: 042
     Dates: start: 20111212, end: 20120213

REACTIONS (4)
  - LUNG INFECTION [None]
  - PYREXIA [None]
  - COLITIS [None]
  - HYPOPHYSITIS [None]
